APPROVED DRUG PRODUCT: BISOPROLOL FUMARATE
Active Ingredient: BISOPROLOL FUMARATE
Strength: 5MG
Dosage Form/Route: TABLET;ORAL
Application: A219044 | Product #001 | TE Code: AB
Applicant: UNIQUE PHARMACEUTICAL LABORATORIES
Approved: Apr 16, 2025 | RLD: No | RS: No | Type: RX